FAERS Safety Report 4901409-X (Version None)
Quarter: 2006Q1

REPORT INFORMATION
  Report Type: 
  Country: None (occurrence: None)
  Receive Date: 20060201
  Receipt Date: 20060201
  Transmission Date: 20060701
  Serious: Yes (Hospitalization)
  Sender: FDA-Public Use
  Company Number: None

PATIENT
  Age: 74 Year
  Sex: Female
  Weight: 69.7 kg

DRUGS (1)
  1. ESTRADIOL [Suspect]
     Indication: BREAST CANCER
     Dosage: 10 MG 3 TIMES DAILY PO
     Route: 048
     Dates: start: 20060125, end: 20060129

REACTIONS (6)
  - BLOOD POTASSIUM DECREASED [None]
  - HAEMATOCRIT DECREASED [None]
  - HAEMOGLOBIN DECREASED [None]
  - HYPONATRAEMIA [None]
  - NAUSEA [None]
  - VOMITING [None]
